FAERS Safety Report 16087156 (Version 1)
Quarter: 2019Q1

REPORT INFORMATION
  Report Type: Spontaneous
  Country: US (occurrence: US)
  Receive Date: 20190319
  Receipt Date: 20190319
  Transmission Date: 20190418
  Serious: Yes (Other)
  Sender: FDA-Public Use
  Company Number: US-ROCHE-2284456

PATIENT
  Sex: Female

DRUGS (1)
  1. OCREVUS [Suspect]
     Active Substance: OCRELIZUMAB
     Indication: MULTIPLE SCLEROSIS
     Dosage: 3 DOSES OF 600 MG IV (THE FIRST DOSE SPLIT ACROSS 2 WEEKS)
     Route: 042

REACTIONS (1)
  - Subcutaneous abscess [Recovered/Resolved]
